FAERS Safety Report 7673802-6 (Version None)
Quarter: 2011Q3

REPORT INFORMATION
  Report Type: 
  Country: None (occurrence: None)
  Receive Date: 20110810
  Receipt Date: 20110804
  Transmission Date: 20111222
  Serious: Yes (Life-Threatening, Hospitalization)
  Sender: FDA-Public Use
  Company Number: PHHY2011DE14896

PATIENT
  Sex: Male

DRUGS (5)
  1. SIMVASTATIN [Concomitant]
     Dosage: 1 DF, QD
  2. METOPROLOL TARTRATE [Concomitant]
     Dosage: 0.25 IN MORNING, 0.5 IN NIGHT
  3. IRENAT [Concomitant]
     Dosage: 1 DF, TID
  4. EMBOLEX [Suspect]
     Indication: BURSA REMOVAL
     Dosage: 3000 IU, 1 DF PER DAY
     Dates: start: 20101222
  5. DIOVAN HCT [Suspect]
     Dosage: 160 MG VALSARTAN+25 MG HYDROCHLOROTHIAZIDE

REACTIONS (2)
  - VENOUS THROMBOSIS [None]
  - PULMONARY EMBOLISM [None]
